FAERS Safety Report 9310648 (Version 2)
Quarter: 2013Q2

REPORT INFORMATION
  Report Type: Spontaneous
  Country: JP (occurrence: JP)
  Receive Date: 20130527
  Receipt Date: 20130610
  Transmission Date: 20140414
  Serious: Yes (Hospitalization)
  Sender: FDA-Public Use
  Company Number: JP-009507513-1305JPN013313

PATIENT
  Age: 18 Year
  Sex: Female

DRUGS (2)
  1. CANCIDAS FOR INTRAVENOUS DRIP INFUSION 50MG [Suspect]
     Dosage: 50 ML, QD
     Route: 041
     Dates: start: 201301, end: 2013
  2. AMBISOME [Suspect]
     Dosage: UNKNOWN
     Route: 051
     Dates: end: 2013

REACTIONS (1)
  - Nervous system disorder [Not Recovered/Not Resolved]
